FAERS Safety Report 7900894-9 (Version None)
Quarter: 2011Q4

REPORT INFORMATION
  Report Type: 
  Country: None (occurrence: None)
  Receive Date: 20111108
  Receipt Date: 20111027
  Transmission Date: 20120403
  Serious: Yes (Other)
  Sender: FDA-Public Use
  Company Number: US-BAYER-2011-003468

PATIENT
  Age: 25 Year
  Sex: Female
  Weight: 63.492 kg

DRUGS (10)
  1. MOTRIN [Concomitant]
  2. NAPROXEN SODIUM AND PSEUDOEPHEDRINE HYDROCHLORIDE [Concomitant]
  3. EFFEXOR [Concomitant]
     Dosage: UNK
     Dates: start: 20080101
  4. DROSPIRENONE AND ETHINYL ESTRADIOL [Suspect]
     Indication: PRODUCT USED FOR UNKNOWN INDICATION
     Dosage: UNK
     Dates: start: 20081101, end: 20090801
  5. CLARITHROMYCIN [Concomitant]
  6. SERTRALINE HYDROCHLORIDE [Concomitant]
     Dosage: UNK
     Dates: start: 20070101, end: 20080101
  7. SINGULAIR [Concomitant]
     Dosage: UNK
     Dates: start: 20090101
  8. YASMIN [Suspect]
     Indication: PRODUCT USED FOR UNKNOWN INDICATION
     Dosage: UNK
     Dates: start: 20041101, end: 20061101
  9. ZITHROMAX [Concomitant]
  10. NEXIUM [Concomitant]
     Dosage: UNK
     Dates: start: 20100203

REACTIONS (7)
  - BILIARY DYSKINESIA [None]
  - EMOTIONAL DISTRESS [None]
  - ARRHYTHMIA [None]
  - ABDOMINAL PAIN [None]
  - ANXIETY [None]
  - CHEST PAIN [None]
  - MENTAL DISORDER [None]
